FAERS Safety Report 14245342 (Version 1)
Quarter: 2017Q4

REPORT INFORMATION
  Report Type: Spontaneous
  Country: US (occurrence: US)
  Receive Date: 20171202
  Receipt Date: 20171202
  Transmission Date: 20180321
  Serious: No
  Sender: FDA-Public Use
  Company Number: US-ENDO PHARMACEUTICALS INC-2017-004736

PATIENT
  Age: 52 Year
  Sex: Male
  Weight: 111.11 kg

DRUGS (3)
  1. TROKENDI [Concomitant]
     Active Substance: TOPIRAMATE
     Indication: PRODUCT USED FOR UNKNOWN INDICATION
  2. TESTOSTERONE. [Concomitant]
     Active Substance: TESTOSTERONE
     Indication: PRODUCT USED FOR UNKNOWN INDICATION
  3. XIAFLEX [Suspect]
     Active Substance: COLLAGENASE CLOSTRIDIUM HISTOLYTICUM
     Indication: PEYRONIE^S DISEASE
     Dosage: UNK, UNKNOWN INJECTION, FIRST CYCLE
     Route: 026
     Dates: start: 20170821

REACTIONS (2)
  - Penile contusion [Recovered/Resolved]
  - Genital contusion [Recovered/Resolved]

NARRATIVE: CASE EVENT DATE: 20170821
